FAERS Safety Report 10792396 (Version 2)
Quarter: 2017Q3

REPORT INFORMATION
  Report Type: Spontaneous
  Country: US (occurrence: US)
  Receive Date: 20150213
  Receipt Date: 20170928
  Transmission Date: 20171127
  Serious: No
  Sender: FDA-Public Use
  Company Number: US-PFIZER INC-2015058507

PATIENT
  Age: 67 Year
  Sex: Female
  Weight: 90.7 kg

DRUGS (11)
  1. VALACYCLOVIR HCL [Concomitant]
     Active Substance: VALACYCLOVIR HYDROCHLORIDE
     Dosage: 1 G, 3X/DAY
     Route: 048
  2. HYDROCHLOROTHIAZIDE. [Concomitant]
     Active Substance: HYDROCHLOROTHIAZIDE
     Indication: ESSENTIAL HYPERTENSION
     Dosage: 25 MG, 1X/DAY
     Route: 048
     Dates: start: 20140102
  3. CELEBREX [Suspect]
     Active Substance: CELECOXIB
     Indication: OSTEOARTHRITIS
     Dosage: UNK, 1X/DAY
  4. TRAMADOL. [Concomitant]
     Active Substance: TRAMADOL
     Indication: OSTEOARTHRITIS
     Dosage: UNK UNK, AS NEEDED (1-2 PO QID PRN)
     Route: 048
  5. XANAX [Concomitant]
     Active Substance: ALPRAZOLAM
     Dosage: 0.5 MG, AS NEEDED (ONCE A DAY)
     Route: 048
     Dates: start: 20110210
  6. ATENOLOL. [Concomitant]
     Active Substance: ATENOLOL
     Indication: ESSENTIAL HYPERTENSION
     Dosage: 25 MG, 1X/DAY
     Route: 048
     Dates: start: 20110210
  7. CELEBREX [Suspect]
     Active Substance: CELECOXIB
     Dosage: 200 MG, 2X/DAY
     Route: 048
  8. LYRICA [Suspect]
     Active Substance: PREGABALIN
     Dosage: 50 MG, 3X/DAY
     Route: 048
  9. TRAMADOL. [Concomitant]
     Active Substance: TRAMADOL
     Indication: PAIN
  10. TRIAMCINOLONE ACETONIDE. [Concomitant]
     Active Substance: TRIAMCINOLONE ACETONIDE
     Dosage: UNK, AS NEEDED (APPLY TO AFFECTED AREA SPARINGLY QD PRN)
     Route: 061
  11. METFORMIN HCL [Concomitant]
     Active Substance: METFORMIN HYDROCHLORIDE
     Dosage: 500 MG, 2X/DAY
     Route: 048

REACTIONS (2)
  - Nasopharyngitis [Unknown]
  - Malaise [Unknown]
